FAERS Safety Report 15524313 (Version 1)
Quarter: 2018Q4

REPORT INFORMATION
  Report Type: Spontaneous
  Country: FR (occurrence: FR)
  Receive Date: 20181018
  Receipt Date: 20181018
  Transmission Date: 20190205
  Serious: Yes (Life-Threatening)
  Sender: FDA-Public Use
  Company Number: FR-TEVA-2018-FR-965609

PATIENT
  Age: 63 Year
  Sex: Male
  Weight: 81 kg

DRUGS (9)
  1. VINCRISTINE (SULFATE DE) [Suspect]
     Active Substance: VINCRISTINE SULFATE
     Indication: TRANSFORMATION TO ACUTE MYELOID LEUKAEMIA
     Dosage: 2 MILLIGRAM DAILY;
     Route: 042
     Dates: start: 20180321
  2. DEXAMETHASONE. [Suspect]
     Active Substance: DEXAMETHASONE
     Indication: TRANSFORMATION TO ACUTE MYELOID LEUKAEMIA
     Dosage: 40 MILLIGRAM DAILY;
     Route: 042
     Dates: start: 20180321
  3. ICLUSIG [Suspect]
     Active Substance: PONATINIB
     Indication: TRANSFORMATION TO ACUTE MYELOID LEUKAEMIA
     Dosage: 1 DOSAGE FORMS DAILY;
     Route: 048
     Dates: start: 20180321, end: 20180325
  4. CYTARABINE. [Suspect]
     Active Substance: CYTARABINE
     Indication: TRANSFORMATION TO ACUTE MYELOID LEUKAEMIA
     Route: 037
     Dates: start: 20180322
  5. METHOTREXATE. [Suspect]
     Active Substance: METHOTREXATE
     Indication: TRANSFORMATION TO ACUTE MYELOID LEUKAEMIA
     Route: 037
     Dates: start: 20180322
  6. METHYLPREDNISOLONE. [Suspect]
     Active Substance: METHYLPREDNISOLONE
     Indication: TRANSFORMATION TO ACUTE MYELOID LEUKAEMIA
     Route: 037
     Dates: start: 20180322
  7. ALLOPURINOL. [Concomitant]
     Active Substance: ALLOPURINOL
     Route: 048
  8. IRBESARTAN. [Concomitant]
     Active Substance: IRBESARTAN
     Route: 048
  9. KARDEGIC [Concomitant]
     Active Substance: ASPIRIN DL-LYSINE
     Route: 048

REACTIONS (2)
  - Rash erythematous [Recovered/Resolved]
  - Pancreatitis acute [Recovered/Resolved]

NARRATIVE: CASE EVENT DATE: 201803
